FAERS Safety Report 22587656 (Version 6)
Quarter: 2024Q1

REPORT INFORMATION
  Report Type: Spontaneous
  Country: PT (occurrence: PT)
  Receive Date: 20230612
  Receipt Date: 20240323
  Transmission Date: 20240409
  Serious: Yes (Hospitalization, Other)
  Sender: FDA-Public Use
  Company Number: PT-AUROBINDO-AUR-APL-2023-041517

PATIENT
  Age: 83 Year
  Sex: Female

DRUGS (5)
  1. CEFTRIAXONE [Suspect]
     Active Substance: CEFTRIAXONE\CEFTRIAXONE SODIUM
     Indication: Intervertebral discitis
     Dosage: 1 DOSAGE FORM (21 DAYS)
     Route: 065
  2. LINEZOLID [Suspect]
     Active Substance: LINEZOLID
     Indication: Intervertebral discitis
     Dosage: 1 DOSAGE FORM (21 DAYS)
     Route: 065
  3. LINEZOLID [Suspect]
     Active Substance: LINEZOLID
     Indication: Antibiotic therapy
  4. METRONIDAZOLE [Suspect]
     Active Substance: METRONIDAZOLE
     Indication: Intervertebral discitis
     Dosage: 1 DOSAGE FORM (21 DAYS)
     Route: 065
  5. MEROPENEM [Concomitant]
     Active Substance: MEROPENEM
     Indication: Urosepsis
     Dosage: UNK
     Route: 065

REACTIONS (21)
  - Bicytopenia [Recovering/Resolving]
  - Myelosuppression [Recovering/Resolving]
  - Septic shock [Recovered/Resolved]
  - Urosepsis [Recovered/Resolved]
  - Lactic acidosis [Recovered/Resolved]
  - Encephalitis [Recovered/Resolved]
  - Cardiovascular disorder [Unknown]
  - Ecthyma [Recovered/Resolved]
  - Renal disorder [Unknown]
  - Nervous system disorder [Unknown]
  - Haematological infection [Unknown]
  - Pallor [Unknown]
  - Hypotension [Unknown]
  - Pustule [Unknown]
  - Vomiting [Unknown]
  - Nausea [Unknown]
  - Tachypnoea [Unknown]
  - Confusional state [Unknown]
  - Toxicity to various agents [Recovering/Resolving]
  - Off label use [Unknown]
  - Intentional product use issue [Recovered/Resolved]
